FAERS Safety Report 5800645-8 (Version None)
Quarter: 2008Q3

REPORT INFORMATION
  Report Type: 
  Country: None (occurrence: None)
  Receive Date: 20080703
  Receipt Date: 20080620
  Transmission Date: 20090109
  Serious: Yes (Hospitalization, Other)
  Sender: FDA-Public Use
  Company Number: DE-ELI_LILLY_AND_COMPANY-DE200805002984

PATIENT
  Sex: Female

DRUGS (5)
  1. CYMBALTA [Suspect]
     Dosage: UNK, UNKNOWN
     Route: 065
  2. ERGENYL CHRONO [Concomitant]
     Dosage: 300 MG, 2/D
     Route: 065
  3. TRUXAL [Concomitant]
     Dosage: 50 MG, 2/D
     Route: 065
  4. LORAZEPAM [Concomitant]
     Dosage: 0.5 MG, 2/D
     Route: 065
  5. REMERGIL [Concomitant]
     Dosage: 45 MG, DAILY (1/D)
     Route: 065

REACTIONS (4)
  - PUPIL FIXED [None]
  - SOPOR [None]
  - STUPOR [None]
  - TACHYCARDIA [None]
